FAERS Safety Report 17856578 (Version 1)
Quarter: 2020Q2

REPORT INFORMATION
  Report Type: Other
  Country: US (occurrence: US)
  Receive Date: 20200603
  Receipt Date: 20200603
  Transmission Date: 20200714
  Serious: Yes (Hospitalization, Other)
  Sender: FDA-Public Use
  Company Number: US-BRECKENRIDGE PHARMACEUTICAL, INC.-2085427

PATIENT
  Age: 7 Year
  Sex: Male

DRUGS (2)
  1. IMATINB MESYLATE [Suspect]
     Active Substance: IMATINIB MESYLATE
     Indication: ACUTE LYMPHOCYTIC LEUKAEMIA
  2. METHOTREXATE. [Interacting]
     Active Substance: METHOTREXATE

REACTIONS (2)
  - Clostridium difficile colitis [None]
  - Drug interaction [None]
